FAERS Safety Report 4325995-6 (Version None)
Quarter: 2004Q1

REPORT INFORMATION
  Report Type: 
  Country: None (occurrence: None)
  Receive Date: 20040329
  Receipt Date: 20040211
  Transmission Date: 20041129
  Serious: Yes (Life-Threatening, Hospitalization)
  Sender: FDA-Public Use
  Company Number: DE-GLAXOSMITHKLINE-D0043137A

PATIENT
  Age: 57 Year
  Sex: Female
  Weight: 77 kg

DRUGS (4)
  1. HYCAMTIN [Suspect]
     Indication: FALLOPIAN TUBE CANCER
     Dosage: 1.5MGM2 PER DAY
     Route: 042
     Dates: start: 20040202, end: 20040203
  2. ANEMET [Concomitant]
     Indication: PROPHYLAXIS
     Dosage: 100MG PER DAY
     Route: 042
     Dates: start: 20040202, end: 20040203
  3. SOSTRIL [Concomitant]
     Dosage: 50MG PER DAY
     Route: 042
     Dates: start: 20040202, end: 20040203
  4. ELECTROLYTE-INFUSION [Concomitant]
     Dosage: 1000ML PER DAY
     Route: 042

REACTIONS (7)
  - ASTHENIA [None]
  - ATTENTION DEFICIT/HYPERACTIVITY DISORDER [None]
  - CONFUSIONAL STATE [None]
  - DEPRESSED LEVEL OF CONSCIOUSNESS [None]
  - EYELID FUNCTION DISORDER [None]
  - PSYCHOTIC DISORDER [None]
  - RESPIRATORY FAILURE [None]
